FAERS Safety Report 5481414-8 (Version None)
Quarter: 2007Q4

REPORT INFORMATION
  Report Type: 
  Country: None (occurrence: None)
  Receive Date: 20071010
  Receipt Date: 20071009
  Transmission Date: 20080405
  Serious: Yes (Other)
  Sender: FDA-Public Use
  Company Number: A0686679A

PATIENT
  Age: 64 Year
  Sex: Male

DRUGS (10)
  1. ADVAIR DISKUS 100/50 [Suspect]
     Indication: ASTHMA
     Dosage: 1PUFF TWICE PER DAY
     Route: 055
  2. PREVACID [Concomitant]
  3. LEXAPRO [Concomitant]
  4. WELLBUTRIN [Concomitant]
  5. LEVOTHYROXINE SODIUM [Concomitant]
  6. FISH OIL [Concomitant]
  7. VITAMIN [Concomitant]
  8. ULTRAM [Concomitant]
  9. OXYCONTIN [Concomitant]
  10. FLOMAX [Concomitant]

REACTIONS (2)
  - LUNG NEOPLASM [None]
  - SARCOMA [None]
